FAERS Safety Report 8609691-2 (Version None)
Quarter: 2012Q3

REPORT INFORMATION
  Report Type: 
  Country: None (occurrence: None)
  Receive Date: 20120821
  Receipt Date: 20120821
  Transmission Date: 20120928
  Serious: Yes (Hospitalization)
  Sender: FDA-Public Use
  Company Number: TR-BAYER-2012-086065

PATIENT
  Age: 62 Year
  Sex: Male

DRUGS (5)
  1. CLOPIDEGREL [Interacting]
     Indication: CORONARY ARTERIAL STENT INSERTION
  2. ASPIRIN [Suspect]
     Indication: CORONARY ARTERY DISEASE
     Dosage: 100 MG, QD
     Route: 048
  3. HERBAL PREPARATION [Interacting]
     Indication: CORONARY ARTERY DISEASE
     Dosage: UNK
  4. CLOPIDEGREL [Interacting]
     Indication: CORONARY ARTERY DISEASE
     Dosage: 75 MG, QD
     Route: 048
  5. ASPIRIN [Suspect]
     Indication: CORONARY ARTERIAL STENT INSERTION

REACTIONS (1)
  - ACUTE CORONARY SYNDROME [None]
